FAERS Safety Report 8794250 (Version 1)
Quarter: 2012Q4

REPORT INFORMATION
  Report Type: 
  Country: US (occurrence: US)
  Receive Date: 20120918
  Receipt Date: 20120918
  Transmission Date: 20130627
  Serious: Yes (Other)
  Sender: FDA-Public Use
  Company Number: US-BAYER-2012-096490

PATIENT
  Age: 67 Year
  Sex: Male
  Weight: 51 kg

DRUGS (1)
  1. NEO-SYNEPHRINE [Suspect]
     Indication: SINUS HEADACHE
     Dosage: sprays two times each nostril at least 6 times a day
     Route: 045

REACTIONS (4)
  - Drug dependence [None]
  - Prostatomegaly [Not Recovered/Not Resolved]
  - Heart rate irregular [Not Recovered/Not Resolved]
  - Claustrophobia [None]
